FAERS Safety Report 6135517-5 (Version None)
Quarter: 2009Q1

REPORT INFORMATION
  Report Type: 
  Country: None (occurrence: None)
  Receive Date: 20090327
  Receipt Date: 20090326
  Transmission Date: 20090719
  Serious: Yes (Other)
  Sender: FDA-Public Use
  Company Number: B0565911A

PATIENT
  Age: 85 Year
  Sex: Female

DRUGS (2)
  1. VALTREX [Suspect]
     Indication: HERPES ZOSTER
     Route: 048
  2. CARBAMAZEPINE [Concomitant]
     Route: 048

REACTIONS (5)
  - BLOOD PRESSURE DECREASED [None]
  - INFECTION [None]
  - NEUTROPENIA [None]
  - PYREXIA [None]
  - SHOCK [None]
